FAERS Safety Report 7098696-1 (Version None)
Quarter: 2010Q4

REPORT INFORMATION
  Report Type: 
  Country: None (occurrence: None)
  Receive Date: 20101104
  Receipt Date: 20101019
  Transmission Date: 20110411
  Serious: Yes (Other)
  Sender: FDA-Public Use
  Company Number: 7023014

PATIENT
  Age: 2 Year
  Sex: Female

DRUGS (1)
  1. EUTHYROX 100 MCG (LEVOTHYROXINE SODIUM) (100 MICROGRAM) (LEVOTHYROXINE [Suspect]
     Indication: CONGENITAL HYPOTHYROIDISM
     Dosage: 37.5 MCG (37.5 MCG,1 IN 1 D)
     Dates: start: 20091027, end: 20091222

REACTIONS (5)
  - ASTHENIA [None]
  - AUTOANTIBODY POSITIVE [None]
  - CONSTIPATION [None]
  - DRUG INEFFECTIVE [None]
  - PRODUCT QUALITY ISSUE [None]
